FAERS Safety Report 8197331-9 (Version None)
Quarter: 2012Q1

REPORT INFORMATION
  Report Type: 
  Country: None (occurrence: None)
  Receive Date: 20120309
  Receipt Date: 20120301
  Transmission Date: 20120608
  Serious: No
  Sender: FDA-Public Use
  Company Number: US-BAYER-2012-021528

PATIENT
  Sex: Female

DRUGS (1)
  1. MIRENA [Suspect]
     Indication: CONTRACEPTION
     Dosage: 20 MCG/24HR, CONT
     Route: 015
     Dates: start: 20110404

REACTIONS (5)
  - INTENTIONAL MEDICAL DEVICE REMOVAL BY PATIENT [None]
  - FEELING ABNORMAL [None]
  - EMOTIONAL DISORDER [None]
  - WEIGHT INCREASED [None]
  - ALOPECIA [None]
